FAERS Safety Report 19410448 (Version 1)
Quarter: 2021Q2

REPORT INFORMATION
  Report Type: Spontaneous
  Country: US (occurrence: US)
  Receive Date: 20210613
  Receipt Date: 20210613
  Transmission Date: 20210717
  Serious: Yes (Disabling)
  Sender: FDA-Public Use
  Company Number: None

PATIENT
  Age: 43 Year
  Sex: Female
  Weight: 94.5 kg

DRUGS (11)
  1. VALSARTAN. [Concomitant]
     Active Substance: VALSARTAN
  2. WELLBUTRIN XL [Concomitant]
     Active Substance: BUPROPION HYDROCHLORIDE
  3. BIOTIN [Concomitant]
     Active Substance: BIOTIN
  4. LEXAPRO [Concomitant]
     Active Substance: ESCITALOPRAM OXALATE
  5. NALTREXONE [Concomitant]
     Active Substance: NALTREXONE
  6. OCREVUS [Suspect]
     Active Substance: OCRELIZUMAB
     Indication: MULTIPLE SCLEROSIS
     Dosage: ?          QUANTITY:1 1;OTHER FREQUENCY:EVERY 6 MONTHS;?
     Route: 058
  7. MULTI VITAMIN [Concomitant]
     Active Substance: VITAMINS
  8. VITAMINS D; B?12 [Concomitant]
  9. MAGNESIUM [Concomitant]
     Active Substance: MAGNESIUM
  10. NIACIN. [Concomitant]
     Active Substance: NIACIN
  11. FISH OIL [Concomitant]
     Active Substance: FISH OIL

REACTIONS (12)
  - Pruritus [None]
  - Toothache [None]
  - Gingival pain [None]
  - Gait disturbance [None]
  - Bladder disorder [None]
  - Constipation [None]
  - Skin exfoliation [None]
  - Contusion [None]
  - Condition aggravated [None]
  - Alopecia [None]
  - Palpitations [None]
  - Pyrexia [None]

NARRATIVE: CASE EVENT DATE: 20180101
